FAERS Safety Report 12257599 (Version 1)
Quarter: 2016Q2

REPORT INFORMATION
  Report Type: Report from Study
  Country: GB (occurrence: GB)
  Receive Date: 20160412
  Receipt Date: 20160412
  Transmission Date: 20160815
  Serious: Yes (Other)
  Sender: FDA-Public Use
  Company Number: GB-ABBVIE-16K-167-1600019-00

PATIENT
  Age: 27 Year
  Sex: Female

DRUGS (1)
  1. HUMIRA [Suspect]
     Active Substance: ADALIMUMAB
     Indication: PRODUCT USED FOR UNKNOWN INDICATION
     Route: 058
     Dates: start: 20150414

REACTIONS (5)
  - Red cell distribution width decreased [Unknown]
  - C-reactive protein increased [Unknown]
  - High density lipoprotein decreased [Unknown]
  - Transient ischaemic attack [Recovered/Resolved with Sequelae]
  - Oropharyngeal pain [Unknown]

NARRATIVE: CASE EVENT DATE: 20160217
